FAERS Safety Report 6411845-0 (Version None)
Quarter: 2009Q4

REPORT INFORMATION
  Report Type: 
  Country: None (occurrence: None)
  Receive Date: 20091023
  Receipt Date: 20090803
  Transmission Date: 20100525
  Serious: Yes (Hospitalization)
  Sender: FDA-Public Use
  Company Number: GB-NAPPMUNDI-GBR-2009-0005443

PATIENT
  Sex: Male

DRUGS (16)
  1. OXYCONTIN [Suspect]
     Indication: DRUG USE FOR UNKNOWN INDICATION
     Dosage: UNK MG, DAILY
     Route: 048
     Dates: start: 20080130
  2. OXYNORM [Suspect]
     Indication: DRUG USE FOR UNKNOWN INDICATION
     Dosage: UNK
     Route: 048
     Dates: start: 20080130
  3. SUNITINIB [Suspect]
     Indication: RENAL CELL CARCINOMA
     Dosage: 37.5 MG, DAILY
     Route: 048
     Dates: start: 20051103
  4. ACETYLSALICYLIC ACID [Concomitant]
     Dosage: UNK
     Route: 065
     Dates: start: 20080630
  5. LANSOPRAZOLE [Concomitant]
     Dosage: UNK
     Route: 065
     Dates: start: 20080630
  6. DOMPERIDONE [Concomitant]
     Dosage: UNK
     Route: 065
     Dates: start: 20080630
  7. AMITRIPTYLINE [Concomitant]
     Dosage: UNK
     Route: 065
     Dates: start: 20080828
  8. ATORVASTATIN [Concomitant]
     Dosage: UNK
     Route: 065
     Dates: start: 20080630, end: 20090401
  9. ZOPICLONE [Concomitant]
     Dosage: UNK
     Route: 065
     Dates: start: 20080828
  10. ESCITALOPRAM [Concomitant]
     Dosage: UNK
     Route: 065
     Dates: start: 20080218
  11. METFORMIN HCL [Concomitant]
     Dosage: UNK
     Route: 065
     Dates: start: 20041024
  12. GLICLAZIDE [Concomitant]
     Dosage: UNK
     Route: 065
     Dates: start: 20040101
  13. FUROSEMIDE [Concomitant]
     Dosage: UNK
     Route: 065
     Dates: start: 20090302, end: 20090501
  14. LEVOFLOXACIN [Concomitant]
     Dosage: UNK
     Route: 065
     Dates: start: 20090223, end: 20090308
  15. VENTOLIN [Concomitant]
     Dosage: UNK
     Route: 065
     Dates: start: 20090302
  16. DIAZEPAM [Concomitant]
     Dosage: UNK
     Route: 065
     Dates: start: 20040901, end: 20090101

REACTIONS (5)
  - ANAEMIA [None]
  - CONSTIPATION [None]
  - HYPERHIDROSIS [None]
  - HYPOAESTHESIA FACIAL [None]
  - LETHARGY [None]
